FAERS Safety Report 9088942 (Version 1)
Quarter: 2013Q1

REPORT INFORMATION
  Report Type: Spontaneous
  Country: US (occurrence: US)
  Receive Date: 20130201
  Receipt Date: 20130201
  Transmission Date: 20140127
  Serious: Yes (Other)
  Sender: FDA-Public Use
  Company Number: CHPA2013US001755

PATIENT
  Sex: Male
  Weight: 151.47 kg

DRUGS (3)
  1. EXCEDRIN MIGRAINE [Suspect]
     Indication: HEADACHE
     Dosage: 2 UNK, PRN
     Dates: start: 2004, end: 20130122
  2. MOTRIN [Concomitant]
     Dosage: UNK, UNK
     Dates: start: 20080621
  3. PENICILLIN                         /02215301/ [Concomitant]
     Dosage: UNK, UNK
     Dates: start: 20080621

REACTIONS (20)
  - Anal cancer stage 0 [Not Recovered/Not Resolved]
  - Gallbladder disorder [Recovered/Resolved]
  - Liver injury [Not Recovered/Not Resolved]
  - Chest injury [Recovered/Resolved]
  - Injury [Recovered/Resolved]
  - Urticaria [Recovered/Resolved]
  - Blood urine present [Not Recovered/Not Resolved]
  - Cyst [Not Recovered/Not Resolved]
  - Anorectal discomfort [Not Recovered/Not Resolved]
  - Anal pruritus [Not Recovered/Not Resolved]
  - Tongue haemorrhage [Not Recovered/Not Resolved]
  - Euphoric mood [Unknown]
  - Chromaturia [Not Recovered/Not Resolved]
  - Pain in jaw [Not Recovered/Not Resolved]
  - Glossodynia [Not Recovered/Not Resolved]
  - Oral pain [Not Recovered/Not Resolved]
  - Tongue disorder [Not Recovered/Not Resolved]
  - Throat irritation [Not Recovered/Not Resolved]
  - Toothache [Not Recovered/Not Resolved]
  - Weight increased [Not Recovered/Not Resolved]
